FAERS Safety Report 9286037 (Version 2)
Quarter: 2013Q2

REPORT INFORMATION
  Report Type: Spontaneous
  Country: BR (occurrence: BR)
  Receive Date: 20130513
  Receipt Date: 20130520
  Transmission Date: 20140414
  Serious: Yes (Other)
  Sender: FDA-Public Use
  Company Number: BR-ASTRAZENECA-2013SE31361

PATIENT
  Age: 18196 Day
  Sex: Male
  Weight: 82 kg

DRUGS (2)
  1. SELOZOK [Suspect]
     Route: 048
     Dates: start: 201211, end: 20130318
  2. LIPLESS [Concomitant]

REACTIONS (2)
  - Cardiac arrest [Recovered/Resolved]
  - Partial seizures [Unknown]
